FAERS Safety Report 17461731 (Version 1)
Quarter: 2020Q1

REPORT INFORMATION
  Report Type: Spontaneous
  Country: US (occurrence: US)
  Receive Date: 20200226
  Receipt Date: 20200226
  Transmission Date: 20200409
  Serious: Yes (Life-Threatening, Hospitalization)
  Sender: FDA-Public Use
  Company Number: None

PATIENT
  Age: 70 Year
  Sex: Male
  Weight: 105 kg

DRUGS (3)
  1. POTASSIUM CHLORIDE 20 MEQ CR [Concomitant]
     Dates: start: 20191025
  2. SENNA/DOCUSATE SODIUM OTC [Concomitant]
     Dates: start: 20190926
  3. IMBRUTINIB [Suspect]
     Active Substance: IBRUTINIB
     Indication: CHRONIC LYMPHOCYTIC LEUKAEMIA
     Route: 048
     Dates: start: 20191018, end: 20200210

REACTIONS (2)
  - Gastrointestinal necrosis [None]
  - Jejunal perforation [None]

NARRATIVE: CASE EVENT DATE: 20200210
